FAERS Safety Report 13636590 (Version 1)
Quarter: 2017Q2

REPORT INFORMATION
  Report Type: Spontaneous
  Country: US (occurrence: US)
  Receive Date: 20170531
  Receipt Date: 20170531
  Transmission Date: 20170830
  Serious: No
  Sender: FDA-Public Use
  Company Number: US-ASTELLAS-1835219

PATIENT
  Sex: Male
  Weight: 89.89 kg

DRUGS (1)
  1. TARCEVA [Suspect]
     Active Substance: ERLOTINIB HYDROCHLORIDE
     Indication: METASTASES TO BLADDER
     Dosage: 3 TABLETS DAILY
     Route: 048
     Dates: start: 20151112, end: 20160926

REACTIONS (4)
  - Peripheral swelling [Unknown]
  - Rash [Unknown]
  - Motor dysfunction [Unknown]
  - Pain in extremity [Unknown]
